FAERS Safety Report 9530734 (Version 1)
Quarter: 2013Q2

REPORT INFORMATION
  Report Type: Spontaneous
  Country: US (occurrence: None)
  Receive Date: 20130418
  Receipt Date: 20130418
  Transmission Date: 20140414
  Serious: Yes (Other)
  Sender: FDA-Public Use
  Company Number: 1301USA001646

PATIENT
  Age: 37 Year
  Sex: Female

DRUGS (4)
  1. MONTELUKAST SODIUM [Suspect]
     Dosage: 250 MG, UNK
  2. CLARITHROMYCIN [Suspect]
  3. ZITHROMAX [Suspect]
     Dosage: 250 MG, UNK
  4. DEXAMETHASONE (DEXAMETHASONE) [Concomitant]

REACTIONS (3)
  - Paraesthesia [None]
  - Myalgia [None]
  - Hypocalcaemia [None]
